FAERS Safety Report 8472729-X (Version None)
Quarter: 2012Q2

REPORT INFORMATION
  Report Type: 
  Country: None (occurrence: None)
  Receive Date: 20120627
  Receipt Date: 20120614
  Transmission Date: 20120825
  Serious: No
  Sender: FDA-Public Use
  Company Number: US-ASTRAZENECA-2012SE28148

PATIENT
  Age: 67 Year
  Sex: Female
  Weight: 55.8 kg

DRUGS (5)
  1. SYMBICORT [Suspect]
     Dosage: 2 PUFFS IN THE MORNING 1 PUFF IN THE EVENING
     Route: 055
  2. SYMBICORT [Suspect]
     Dosage: 2 PUFFS IN THE MORNING AND 2 PUFFS IN THE EVENING
     Route: 055
  3. PROAIR HFA [Concomitant]
  4. SYMBICORT [Suspect]
     Dosage: 80/4.5MCG 2 PUFFS TWICE DAILY
     Route: 055
  5. SYMBICORT [Suspect]
     Dosage: 3 PUFFS ONCE A DAY
     Route: 055

REACTIONS (4)
  - INSOMNIA [None]
  - CHEST PAIN [None]
  - OFF LABEL USE [None]
  - INTENTIONAL DRUG MISUSE [None]
